FAERS Safety Report 6848727-6 (Version None)
Quarter: 2010Q3

REPORT INFORMATION
  Report Type: 
  Country: None (occurrence: None)
  Receive Date: 20100716
  Receipt Date: 20070905
  Transmission Date: 20110219
  Serious: No
  Sender: FDA-Public Use
  Company Number: US-PFIZER INC-2007075232

PATIENT
  Sex: Female
  Weight: 70.5 kg

DRUGS (3)
  1. CHANTIX [Suspect]
     Indication: SMOKING CESSATION THERAPY
     Dates: start: 20070101
  2. THYROID TAB [Concomitant]
     Indication: THYROID DISORDER
  3. ESTROGENS [Concomitant]

REACTIONS (3)
  - ABNORMAL DREAMS [None]
  - FOOD CRAVING [None]
  - WEIGHT INCREASED [None]
